FAERS Safety Report 16751397 (Version 1)
Quarter: 2019Q3

REPORT INFORMATION
  Report Type: Spontaneous
  Country: US (occurrence: US)
  Receive Date: 20190828
  Receipt Date: 20190828
  Transmission Date: 20191005
  Serious: Yes (Hospitalization, Other)
  Sender: FDA-Public Use
  Company Number: US-PFIZER INC-2019364535

PATIENT
  Age: 61 Year
  Sex: Female

DRUGS (2)
  1. TPN ELECTROLYTES [Suspect]
     Active Substance: CALCIUM CHLORIDE\MAGNESIUM CHLORIDE\POTASSIUM CHLORIDE\SODIUM ACETATE ANHYDROUS\SODIUM CHLORIDE
     Indication: CROHN^S DISEASE
     Dosage: UNK (PERIPHERALLY INSERTED CENTRAL VENOUS CATHETER)
     Route: 042
  2. TPN ELECTROLYTES [Suspect]
     Active Substance: CALCIUM CHLORIDE\MAGNESIUM CHLORIDE\POTASSIUM CHLORIDE\SODIUM ACETATE ANHYDROUS\SODIUM CHLORIDE
     Indication: SHORT-BOWEL SYNDROME

REACTIONS (3)
  - Candida infection [Recovering/Resolving]
  - Fungaemia [Recovering/Resolving]
  - Device related infection [Recovering/Resolving]
